FAERS Safety Report 14345666 (Version 1)
Quarter: 2017Q4

REPORT INFORMATION
  Report Type: Spontaneous
  Country: US (occurrence: US)
  Receive Date: 20171230
  Receipt Date: 20171230
  Transmission Date: 20180321
  Serious: No
  Sender: FDA-Public Use
  Company Number: None

PATIENT
  Age: 61 Year
  Sex: Male

DRUGS (1)
  1. CAPECITABINE 500MG WEST-WARD PHARMACEUTICAL [Suspect]
     Active Substance: CAPECITABINE
     Indication: COLON CANCER
     Dosage: 2000MG BID, FOR 14 DAYS THEN OFF 7 DAYS. PO
     Route: 048
     Dates: start: 20171010

REACTIONS (4)
  - Pain [None]
  - Paraesthesia [None]
  - Palmar-plantar erythrodysaesthesia syndrome [None]
  - Swelling [None]

NARRATIVE: CASE EVENT DATE: 20170214
